FAERS Safety Report 10721473 (Version 4)
Quarter: 2020Q1

REPORT INFORMATION
  Report Type: Report from Study
  Country: US (occurrence: US)
  Receive Date: 20150119
  Receipt Date: 20200103
  Transmission Date: 20200409
  Serious: Yes (Hospitalization, Other)
  Sender: FDA-Public Use
  Company Number: US-SA-2015SA003512

PATIENT
  Age: 62 Year
  Sex: Male
  Weight: 64.8 kg

DRUGS (3)
  1. TERIFLUNOMIDE. [Suspect]
     Active Substance: TERIFLUNOMIDE
     Indication: MULTIPLE SCLEROSIS
     Dosage: 14 MG,QD
     Route: 048
     Dates: start: 2013, end: 20150109
  2. INSULIN [Concomitant]
     Active Substance: INSULIN NOS
     Dosage: UNK
  3. TERIFLUNOMIDE. [Suspect]
     Active Substance: TERIFLUNOMIDE
     Dosage: 7 MG,QD
     Route: 048
     Dates: start: 20150201

REACTIONS (15)
  - Multiple sclerosis [Recovered/Resolved]
  - Confusional state [Unknown]
  - Visual impairment [Unknown]
  - Muscle spasms [Unknown]
  - Prostatic disorder [Recovered/Resolved]
  - Fall [Unknown]
  - Dehydration [Unknown]
  - Vomiting [Unknown]
  - Muscle contractions involuntary [Unknown]
  - Cardiac disorder [Unknown]
  - Myocardial infarction [Unknown]
  - Nausea [Unknown]
  - Blood pressure increased [Unknown]
  - Urinary tract infection [Recovered/Resolved]
  - Hyperhidrosis [Unknown]

NARRATIVE: CASE EVENT DATE: 201501
